FAERS Safety Report 4973020-6 (Version None)
Quarter: 2006Q2

REPORT INFORMATION
  Report Type: 
  Country: None (occurrence: None)
  Receive Date: 20060410
  Receipt Date: 20060329
  Transmission Date: 20061013
  Serious: Yes (Hospitalization)
  Sender: FDA-Public Use
  Company Number: 2006044962

PATIENT
  Sex: Female
  Weight: 68.0396 kg

DRUGS (4)
  1. ACCUPRIL [Suspect]
     Indication: HYPERTENSION
     Dosage: SEE IMAGE
  2. ACCURETIC [Suspect]
     Indication: HYPERTENSION
     Dosage: SEE IMAGE
  3. NORVASC [Suspect]
     Indication: HYPERTENSION
     Dosage: 10 MG (10 MG, 1 IN 1 D),
  4. HYDROCHLOROTHIAZIDE [Suspect]
     Indication: HYPERTENSION

REACTIONS (7)
  - ANXIETY [None]
  - BACK PAIN [None]
  - CONDITION AGGRAVATED [None]
  - DRUG INEFFECTIVE [None]
  - HYPERTENSION [None]
  - PANIC ATTACK [None]
  - THERAPY NON-RESPONDER [None]
